FAERS Safety Report 21700807 (Version 2)
Quarter: 2023Q2

REPORT INFORMATION
  Report Type: Spontaneous
  Country: US (occurrence: US)
  Receive Date: 20221208
  Receipt Date: 20230410
  Transmission Date: 20230722
  Serious: Yes (Hospitalization, Other)
  Sender: FDA-Public Use
  Company Number: US-NOVOPROD-988643

PATIENT
  Sex: Female
  Weight: 3.17 kg

DRUGS (16)
  1. HUMIRA [Concomitant]
     Active Substance: ADALIMUMAB
     Indication: Psoriatic arthropathy
     Dosage: 40 UNITS
     Dates: start: 201809, end: 20220111
  2. ATORVASTATIN [Concomitant]
     Active Substance: ATORVASTATIN
     Indication: Dyslipidaemia
     Dosage: 40 MG, QD
     Route: 064
     Dates: start: 2018, end: 202202
  3. LISINOPRIL [Concomitant]
     Active Substance: LISINOPRIL
     Indication: Hypertension
     Dosage: 5 MG, QD
     Route: 064
     Dates: start: 2019, end: 202202
  4. VASCEPA [Concomitant]
     Active Substance: ICOSAPENT ETHYL
     Indication: Dyslipidaemia
     Dosage: 1 G, BID
     Route: 064
     Dates: start: 2018, end: 202201
  5. VISTARIL [Concomitant]
     Active Substance: HYDROXYZINE PAMOATE
     Indication: Anxiety
     Dosage: 50 MG, PRN
     Route: 064
     Dates: start: 20211021
  6. SERTRALINE [Concomitant]
     Active Substance: SERTRALINE HYDROCHLORIDE
     Indication: Anxiety
     Dosage: 125 MG, QD
     Route: 064
     Dates: start: 20211021, end: 20220323
  7. TRAZODONE [Concomitant]
     Active Substance: TRAZODONE HYDROCHLORIDE
     Indication: Anxiety
     Dosage: 50 MG, PRN
     Route: 064
     Dates: start: 20211021
  8. WELLBUTRIN [Concomitant]
     Active Substance: BUPROPION HYDROCHLORIDE
     Indication: Anxiety
     Dosage: 150 MG, QD
     Route: 064
     Dates: start: 20211130, end: 20220512
  9. CEPHALEXIN [Concomitant]
     Active Substance: CEPHALEXIN
     Indication: Vaginal infection
     Dosage: 500 MG, QID
     Route: 064
     Dates: start: 20220330, end: 20220406
  10. FOLIC ACID [Concomitant]
     Active Substance: FOLIC ACID
     Indication: Supplementation therapy
     Dosage: 1 MG, QD
     Route: 064
     Dates: start: 20220328
  11. NOVOLOG [Suspect]
     Active Substance: INSULIN ASPART
     Indication: Type 1 diabetes mellitus
     Dosage: 50 IU, QD
     Route: 064
     Dates: start: 20210802
  12. NOVOLOG [Suspect]
     Active Substance: INSULIN ASPART
     Dosage: 17 IU, TID
     Route: 064
     Dates: start: 20220414
  13. TRESIBA [Suspect]
     Active Substance: INSULIN DEGLUDEC
     Indication: Type 1 diabetes mellitus
     Dosage: 55 UNITS QHS
     Route: 064
     Dates: start: 20220414
  14. METFORMIN [Concomitant]
     Active Substance: METFORMIN HYDROCHLORIDE
     Indication: Type 1 diabetes mellitus
     Dosage: 500 MG QPM
     Route: 064
     Dates: start: 20220711
  15. PFIZER-BIONTECH COVID-19 VACCINE [Concomitant]
     Active Substance: TOZINAMERAN
     Indication: Prophylaxis
     Dosage: 0.3 ML, SINGLE
     Route: 064
     Dates: start: 20220110, end: 20220110
  16. MAGNESIUM [Concomitant]
     Active Substance: MAGNESIUM
     Indication: Nutritional supplementation
     Dosage: 250 MG, QD
     Route: 064
     Dates: start: 20211203, end: 202201

REACTIONS (8)
  - Hypoglycaemia neonatal [Recovered/Resolved]
  - Foetal exposure during pregnancy [Recovered/Resolved]
  - Infantile apnoea [Recovered/Resolved]
  - Hyperbilirubinaemia neonatal [Recovered/Resolved]
  - Neonatal hypocalcaemia [Recovered/Resolved]
  - Atrial septal defect [Recovered/Resolved]
  - Patent ductus arteriosus [Recovered/Resolved]
  - Ventricular septal defect [Recovered/Resolved]

NARRATIVE: CASE EVENT DATE: 20220126
